FAERS Safety Report 4278099-5 (Version None)
Quarter: 2004Q1

REPORT INFORMATION
  Report Type: 
  Country: None (occurrence: None)
  Receive Date: 20040122
  Receipt Date: 20040122
  Transmission Date: 20041129
  Serious: Yes (Other)
  Sender: FDA-Public Use
  Company Number: None

PATIENT
  Sex: Female
  Weight: 66.2252 kg

DRUGS (2)
  1. OGEN 1.25 [Suspect]
     Indication: HORMONE REPLACEMENT THERAPY
     Dosage: ONE DOSE PATCH WEEKLY
     Dates: start: 20040114
  2. CLIMARA [Suspect]

REACTIONS (5)
  - APPLICATION SITE REACTION [None]
  - DIARRHOEA [None]
  - DYSPEPSIA [None]
  - PHARMACEUTICAL PRODUCT COMPLAINT [None]
  - URTICARIA [None]
